FAERS Safety Report 18247380 (Version 3)
Quarter: 2020Q4

REPORT INFORMATION
  Report Type: Spontaneous
  Country: GB (occurrence: GB)
  Receive Date: 20200909
  Receipt Date: 20201027
  Transmission Date: 20210113
  Serious: Yes (Hospitalization, Other)
  Sender: FDA-Public Use
  Company Number: GB-OTSUKA-2020_020905

PATIENT
  Age: 32 Year
  Sex: Male

DRUGS (2)
  1. MARIJUANA [Suspect]
     Active Substance: CANNABIS SATIVA SUBSP. INDICA TOP
     Indication: RESTLESSNESS
     Dosage: UNK
     Route: 065
  2. ABILIFY MAINTENA [Suspect]
     Active Substance: ARIPIPRAZOLE
     Indication: PRODUCT USED FOR UNKNOWN INDICATION
     Dosage: 400 MG, UNK
     Route: 065

REACTIONS (8)
  - Thinking abnormal [Recovering/Resolving]
  - Drug ineffective [Unknown]
  - Mood swings [Recovering/Resolving]
  - Restlessness [Recovering/Resolving]
  - Schizoaffective disorder [Recovering/Resolving]
  - Drug abuse [Unknown]
  - Disturbance in attention [Recovering/Resolving]
  - Economic problem [Unknown]

NARRATIVE: CASE EVENT DATE: 2020
